FAERS Safety Report 4955375-1 (Version None)
Quarter: 2006Q1

REPORT INFORMATION
  Report Type: 
  Country: None (occurrence: None)
  Receive Date: 20060322
  Receipt Date: 20060310
  Transmission Date: 20060701
  Serious: Yes (Hospitalization)
  Sender: FDA-Public Use
  Company Number: FABR-11417

PATIENT
  Age: 44 Year
  Sex: Male
  Weight: 99 kg

DRUGS (1)
  1. FABRAZYME [Suspect]
     Indication: FABRY'S DISEASE
     Dosage: 105 MG Q2WKS IV
     Route: 042
     Dates: start: 20030701

REACTIONS (5)
  - DEVICE RELATED INFECTION [None]
  - DIABETES MELLITUS NON-INSULIN-DEPENDENT [None]
  - INFUSION RELATED REACTION [None]
  - RENAL CELL CARCINOMA STAGE UNSPECIFIED [None]
  - UROSEPSIS [None]
